FAERS Safety Report 4578000-0 (Version None)
Quarter: 2005Q1

REPORT INFORMATION
  Report Type: 
  Country: None (occurrence: None)
  Receive Date: 20050209
  Receipt Date: 20050131
  Transmission Date: 20050727
  Serious: Yes (Hospitalization)
  Sender: FDA-Public Use
  Company Number: 2005024265

PATIENT
  Age: 59 Year
  Sex: Male

DRUGS (1)
  1. CLINDAMYCIN PHOSPHATE [Suspect]
     Indication: NASOPHARYNGITIS
     Dosage: INTRAVENOUS
     Route: 042
     Dates: start: 20040101

REACTIONS (5)
  - COUGH [None]
  - DEHYDRATION [None]
  - INTERSTITIAL LUNG DISEASE [None]
  - PYREXIA [None]
  - RASH GENERALISED [None]
